FAERS Safety Report 10564277 (Version 1)
Quarter: 2014Q4

REPORT INFORMATION
  Report Type: Spontaneous
  Country: FR (occurrence: FR)
  Receive Date: 20141104
  Receipt Date: 20141104
  Transmission Date: 20150529
  Serious: Yes (Hospitalization)
  Sender: FDA-Public Use
  Company Number: FR-PFIZER INC-2014302484

PATIENT
  Age: 81 Year
  Sex: Female

DRUGS (9)
  1. PERINDOPRIL [Suspect]
     Active Substance: PERINDOPRIL
     Dosage: UNK
     Route: 065
     Dates: end: 201405
  2. CORDARONE [Suspect]
     Active Substance: AMIODARONE HYDROCHLORIDE
     Dosage: UNK
  3. BISOCE [Suspect]
     Active Substance: BISOPROLOL
     Dosage: UNK
  4. STABLON [Suspect]
     Active Substance: TIANEPTINE
     Dosage: UNK
     Dates: end: 201405
  5. METFORMINE [Concomitant]
     Active Substance: METFORMIN HYDROCHLORIDE
     Dosage: UNK
  6. GLICLAZIDE [Concomitant]
     Active Substance: GLICLAZIDE
     Dosage: UNK
     Dates: end: 201405
  7. COUMADINE [Concomitant]
     Active Substance: WARFARIN SODIUM
     Dosage: UNK
  8. STILNOX [Suspect]
     Active Substance: ZOLPIDEM TARTRATE
     Dosage: UNK
  9. LASILIX [Suspect]
     Active Substance: FUROSEMIDE
     Dosage: UNK

REACTIONS (4)
  - Loss of consciousness [Recovered/Resolved]
  - Fall [Recovered/Resolved]
  - Craniocerebral injury [Recovered/Resolved]
  - Orthostatic hypotension [Recovered/Resolved]

NARRATIVE: CASE EVENT DATE: 20140420
